FAERS Safety Report 8540365-2 (Version None)
Quarter: 2012Q3

REPORT INFORMATION
  Report Type: 
  Country: None (occurrence: None)
  Receive Date: 20120726
  Receipt Date: 20120320
  Transmission Date: 20120928
  Serious: No
  Sender: FDA-Public Use
  Company Number: US-ASTRAZENECA-2010SE32457

PATIENT
  Age: 54 Year
  Sex: Female
  Weight: 69.9 kg

DRUGS (8)
  1. DARVON [Concomitant]
  2. PROZAC [Concomitant]
  3. LYRICA [Concomitant]
  4. PRAVASTATIN [Concomitant]
  5. XANAX [Concomitant]
  6. SEROQUEL [Suspect]
     Indication: SLEEP DISORDER
     Route: 048
     Dates: start: 20030101
  7. SEROQUEL [Suspect]
     Route: 048
  8. METFORMIN HYDROCHLORIDE [Concomitant]

REACTIONS (10)
  - HALLUCINATION [None]
  - INSOMNIA [None]
  - SLEEP DISORDER [None]
  - DRUG DOSE OMISSION [None]
  - WEIGHT DECREASED [None]
  - MALAISE [None]
  - DIABETES MELLITUS [None]
  - NEUROPATHY PERIPHERAL [None]
  - MIGRAINE [None]
  - OFF LABEL USE [None]
